FAERS Safety Report 5398553-2 (Version None)
Quarter: 2007Q3

REPORT INFORMATION
  Report Type: 
  Country: None (occurrence: None)
  Receive Date: 20070726
  Receipt Date: 20060628
  Transmission Date: 20080115
  Serious: No
  Sender: FDA-Public Use
  Company Number: US-AMGEN-KDL184742

PATIENT
  Sex: Female

DRUGS (3)
  1. PROCRIT [Suspect]
     Indication: MYELODYSPLASTIC SYNDROME
     Dates: end: 20060601
  2. ATIVAN [Concomitant]
     Route: 048
  3. ADVIL LIQUI-GELS [Concomitant]
     Route: 048

REACTIONS (1)
  - PAIN IN EXTREMITY [None]
